FAERS Safety Report 21474997 (Version 1)
Quarter: 2022Q4

REPORT INFORMATION
  Report Type: Spontaneous
  Country: JP (occurrence: JP)
  Receive Date: 20221019
  Receipt Date: 20221019
  Transmission Date: 20230113
  Serious: Yes (Hospitalization, Other)
  Sender: FDA-Public Use
  Company Number: JP-SUN PHARMACEUTICAL INDUSTRIES LTD-2022R1-345124

PATIENT
  Age: 37 Year
  Sex: Male

DRUGS (1)
  1. LITHIUM [Suspect]
     Active Substance: LITHIUM
     Indication: Bipolar disorder
     Dosage: UNK
     Route: 065

REACTIONS (6)
  - Toxicity to various agents [Unknown]
  - Cytotoxic lesions of corpus callosum [Recovered/Resolved]
  - Overdose [Unknown]
  - Mental status changes [Recovered/Resolved]
  - Encephalitis [Recovered/Resolved]
  - Encephalopathy [Recovered/Resolved]
